FAERS Safety Report 6549679-9 (Version None)
Quarter: 2010Q1

REPORT INFORMATION
  Report Type: 
  Country: None (occurrence: None)
  Receive Date: 20100125
  Receipt Date: 20100114
  Transmission Date: 20100710
  Serious: Yes (Life-Threatening, Hospitalization, Other)
  Sender: FDA-Public Use
  Company Number: DE-BAYER-200921682GPV

PATIENT
  Age: 64 Year
  Sex: Male
  Weight: 88 kg

DRUGS (12)
  1. NEXAVAR [Suspect]
     Indication: RENAL CELL CARCINOMA
     Route: 048
     Dates: start: 20060725
  2. NEXAVAR [Suspect]
     Route: 048
     Dates: end: 20070122
  3. NEXAVAR [Suspect]
     Route: 048
     Dates: start: 20070226
  4. NEXAVAR [Suspect]
     Route: 048
  5. SELENASE [Concomitant]
     Indication: DRUG USE FOR UNKNOWN INDICATION
     Dosage: 1 AMPULE
     Route: 048
     Dates: start: 20060724
  6. BERLOSIN [Concomitant]
     Indication: DRUG USE FOR UNKNOWN INDICATION
     Dosage: IF TEMPERATURE } 39
     Route: 065
     Dates: start: 20060724
  7. VALIUM [Concomitant]
     Indication: DRUG USE FOR UNKNOWN INDICATION
     Dosage: TOTAL DAILY DOSE: 2 DF
     Route: 065
     Dates: start: 20070104
  8. NYSTATIN [Concomitant]
     Indication: DRUG USE FOR UNKNOWN INDICATION
     Dosage: TOTAL DAILY DOSE: 2 ML
     Route: 065
     Dates: start: 20070104
  9. PREDNITOP [Concomitant]
     Indication: DRUG USE FOR UNKNOWN INDICATION
     Dosage: 2-3 X
     Route: 065
     Dates: start: 20070312
  10. LOPEDIUM [Concomitant]
     Indication: DRUG USE FOR UNKNOWN INDICATION
     Dosage: ACCORDING TO REGULATION
     Route: 065
     Dates: start: 20071123
  11. FUNGIZID [Concomitant]
     Indication: DRUG USE FOR UNKNOWN INDICATION
     Dosage: 40 ML N2
     Route: 065
     Dates: start: 20071211
  12. VOMEX A [Concomitant]
     Indication: DRUG USE FOR UNKNOWN INDICATION
     Dates: start: 20080325

REACTIONS (5)
  - BILE DUCT OBSTRUCTION [None]
  - HEPATIC FAILURE [None]
  - SENSORY DISTURBANCE [None]
  - SHOCK HYPOGLYCAEMIC [None]
  - STOMATITIS [None]
